FAERS Safety Report 8065264-4 (Version None)
Quarter: 2011Q4

REPORT INFORMATION
  Report Type: 
  Country: None (occurrence: None)
  Receive Date: 20111221
  Receipt Date: 20110427
  Transmission Date: 20120403
  Serious: Yes (Hospitalization)
  Sender: FDA-Public Use
  Company Number: PHHY2011US34813

PATIENT
  Age: 58 Year
  Sex: Male
  Weight: 109.5 kg

DRUGS (1)
  1. EXJADE [Suspect]
     Indication: IRON METABOLISM DISORDER
     Dosage: 2500 MG, QD, ORAL
     Route: 048

REACTIONS (1)
  - OVERDOSE [None]
